FAERS Safety Report 16484062 (Version 1)
Quarter: 2019Q3

REPORT INFORMATION
  Report Type: Spontaneous
  Country: US (occurrence: US)
  Receive Date: 20190625
  Receipt Date: 20190625
  Transmission Date: 20191004
  Serious: Yes (Hospitalization)
  Sender: FDA-Public Use
  Company Number: None

PATIENT
  Age: 79 Year
  Sex: Female

DRUGS (3)
  1. CELEBREX, LIBRIUM, [Concomitant]
  2. ORENCIA [Suspect]
     Active Substance: ABATACEPT
     Indication: RHEUMATOID ARTHRITIS
     Dosage: ?          OTHER FREQUENCY:EVERY 4 WEEKS;?
     Route: 042
     Dates: start: 20121225
  3. VIT D, CALCIUM, CHLORDIAZEP, FOLIC ACID, METHOTREXATE [Concomitant]

REACTIONS (1)
  - Rehabilitation therapy [None]

NARRATIVE: CASE EVENT DATE: 20190624
